FAERS Safety Report 7187882 (Version 3)
Quarter: 2014Q4

REPORT INFORMATION
  Report Type: Spontaneous
  Country: US (occurrence: US)
  Receive Date: 20091124
  Receipt Date: 20141009
  Transmission Date: 20150529
  Serious: Yes (Hospitalization, Disabling, Other)
  Sender: FDA-Public Use
  Company Number: US-ELI_LILLY_AND_COMPANY-US200911003937

PATIENT
  Age: 37 Year
  Sex: Male
  Weight: 89.34 kg

DRUGS (2)
  1. ZYPREXA [Suspect]
     Active Substance: OLANZAPINE
     Indication: SCHIZOPHRENIA, PARANOID TYPE
     Dosage: 20 MG, EACH EVENING
     Route: 065
     Dates: end: 20000102
  2. ZYPREXA [Suspect]
     Active Substance: OLANZAPINE
     Dosage: 5MG QOD
     Route: 065
     Dates: start: 20000103, end: 20021212

REACTIONS (7)
  - Diabetic ketoacidosis [Recovered/Resolved]
  - Myocardial infarction [Recovered/Resolved]
  - Hyperlipidaemia [Not Recovered/Not Resolved]
  - Renal disorder [Not Recovered/Not Resolved]
  - Coronary artery disease [Recovering/Resolving]
  - Diabetes mellitus inadequate control [Not Recovered/Not Resolved]
  - Nephritis [Not Recovered/Not Resolved]

NARRATIVE: CASE EVENT DATE: 19990403
